FAERS Safety Report 9805948 (Version 2)
Quarter: 2014Q1

REPORT INFORMATION
  Report Type: Spontaneous
  Country: US (occurrence: US)
  Receive Date: 20140109
  Receipt Date: 20140213
  Transmission Date: 20141002
  Serious: Yes (Other)
  Sender: FDA-Public Use
  Company Number: US-MYLANLABS-2014S1000105

PATIENT
  Sex: Female
  Weight: 56.7 kg

DRUGS (10)
  1. LEVOTHYROXINE SODIUM TABLETS, USP [Suspect]
     Indication: AUTOIMMUNE THYROIDITIS
     Route: 048
     Dates: start: 2005, end: 2012
  2. SYNTHROID [Suspect]
     Dates: start: 2011
  3. LIOTHYRONINE SODIUM TABLETS USP [Suspect]
     Dates: start: 2011
  4. LEVOTHYROXINE SODIUM TABLETS, USP [Suspect]
     Indication: AUTOIMMUNE THYROIDITIS
     Route: 048
     Dates: start: 20130225, end: 20130324
  5. LEVOTHYROXINE SODIUM TABLETS, USP [Suspect]
     Indication: AUTOIMMUNE THYROIDITIS
     Route: 048
     Dates: start: 20130517
  6. ARMOUR THYROID [Suspect]
     Dates: start: 201307
  7. VALIUM [Concomitant]
     Indication: ANXIETY
  8. PERCOCET [Concomitant]
     Indication: PAIN
  9. ZOLOFT [Concomitant]
     Indication: DEPRESSION
  10. NEURONTIN [Concomitant]
     Indication: MOOD SWINGS

REACTIONS (11)
  - Panic attack [Recovered/Resolved]
  - Oropharyngeal pain [Recovered/Resolved]
  - Pruritus [Recovered/Resolved]
  - Laboratory test abnormal [Recovered/Resolved]
  - Rash [Recovered/Resolved]
  - Pain [Not Recovered/Not Resolved]
  - Anxiety [Recovered/Resolved]
  - Headache [Recovered/Resolved]
  - Nasal congestion [Recovered/Resolved]
  - Lacrimation increased [Recovered/Resolved]
  - Reaction to drug excipients [Recovered/Resolved]
